FAERS Safety Report 9537958 (Version 1)
Quarter: 2013Q3

REPORT INFORMATION
  Report Type: Spontaneous
  Country: FR (occurrence: FR)
  Receive Date: 20130919
  Receipt Date: 20130919
  Transmission Date: 20140515
  Serious: Yes (Other)
  Sender: FDA-Public Use
  Company Number: FR-ACTAVIS-2013-16089

PATIENT
  Age: 17 Year
  Sex: Female

DRUGS (4)
  1. PARACETAMOL (UNKNOWN) [Suspect]
     Indication: SUICIDE ATTEMPT
     Dosage: UNK
     Route: 065
  2. DEBRIDAT                           /00465201/ [Concomitant]
     Indication: SUICIDE ATTEMPT
     Dosage: UNK
     Route: 048
  3. ERCEFURYL [Concomitant]
     Indication: SUICIDE ATTEMPT
     Dosage: UNK
     Route: 048
  4. OGASTORO [Concomitant]
     Indication: SUICIDE ATTEMPT
     Dosage: UNK
     Route: 048

REACTIONS (1)
  - Drug level above therapeutic [Unknown]
